FAERS Safety Report 8304212-6 (Version None)
Quarter: 2012Q2

REPORT INFORMATION
  Report Type: 
  Country: None (occurrence: None)
  Receive Date: 20120423
  Receipt Date: 20120416
  Transmission Date: 20120825
  Serious: Yes (Other)
  Sender: FDA-Public Use
  Company Number: US-BAYER-2012-037447

PATIENT
  Age: 59 Year
  Sex: Female
  Weight: 54 kg

DRUGS (6)
  1. ALEVE (CAPLET) [Suspect]
     Indication: BACK PAIN
     Dosage: 1 DF, QD
     Route: 048
  2. LISINOPRIL [Concomitant]
  3. SYNTHROID [Concomitant]
  4. CITRACAL CALCIUM + D SLOW RELEASE 1200 [Suspect]
     Dosage: UNK
     Route: 048
  5. PRILOSEC [Concomitant]
  6. ATENOLOL [Concomitant]

REACTIONS (2)
  - FOREIGN BODY [None]
  - BACK PAIN [None]
